FAERS Safety Report 16481978 (Version 1)
Quarter: 2019Q2

REPORT INFORMATION
  Report Type: Report from Study
  Country: None (occurrence: US)
  Receive Date: 20190627
  Receipt Date: 20190627
  Transmission Date: 20190711
  Serious: Yes (Other)
  Sender: FDA-Public Use
  Company Number: US-ABBVIE-19K-163-2698499-00

PATIENT
  Sex: Female

DRUGS (1)
  1. HUMIRA [Suspect]
     Active Substance: ADALIMUMAB
     Indication: CROHN^S DISEASE
     Route: 058

REACTIONS (11)
  - Crohn^s disease [Unknown]
  - Loss of consciousness [Unknown]
  - Flatulence [Recovering/Resolving]
  - Joint range of motion decreased [Unknown]
  - Blood pressure decreased [Unknown]
  - Lip swelling [Unknown]
  - Haemorrhage [Unknown]
  - Vomiting [Recovered/Resolved]
  - Musculoskeletal disorder [Unknown]
  - Body temperature decreased [Unknown]
  - Abdominal distension [Recovering/Resolving]
